FAERS Safety Report 17898587 (Version 2)
Quarter: 2020Q3

REPORT INFORMATION
  Report Type: Other
  Country: GB (occurrence: GB)
  Receive Date: 20200616
  Receipt Date: 20200826
  Transmission Date: 20201103
  Serious: Yes (Other)
  Sender: FDA-Public Use
  Company Number: GB-ROCHE-2612648

PATIENT
  Sex: Female

DRUGS (2)
  1. PERJETA [Suspect]
     Active Substance: PERTUZUMAB
     Indication: HER2 POSITIVE BREAST CANCER
     Route: 065
  2. HERCEPTIN [Suspect]
     Active Substance: TRASTUZUMAB
     Indication: HER2 POSITIVE BREAST CANCER
     Route: 065

REACTIONS (16)
  - Asthenia [Unknown]
  - Catheter site related reaction [Unknown]
  - Injection site bruising [Unknown]
  - Procedural pain [Unknown]
  - Visual impairment [Unknown]
  - Vein disorder [Unknown]
  - Feeling cold [Unknown]
  - Cognitive disorder [Unknown]
  - Skin discolouration [Unknown]
  - Ill-defined disorder [Unknown]
  - Device related thrombosis [Unknown]
  - Therapeutic response delayed [Unknown]
  - Dysgeusia [Unknown]
  - Nausea [Unknown]
  - Fatigue [Unknown]
  - Anxiety [Unknown]
